FAERS Safety Report 21669907 (Version 3)
Quarter: 2023Q1

REPORT INFORMATION
  Report Type: Report from Study
  Country: CO (occurrence: CO)
  Receive Date: 20221201
  Receipt Date: 20230113
  Transmission Date: 20230417
  Serious: Yes (Hospitalization, Other)
  Sender: FDA-Public Use
  Company Number: CO-TAKEDA-2022TUS047586

PATIENT
  Age: 2 Year
  Sex: Male
  Weight: 11.4 kg

DRUGS (4)
  1. HUMAN IMMUNOGLOBULIN G [Suspect]
     Active Substance: HUMAN IMMUNOGLOBULIN G
     Indication: Primary immunodeficiency syndrome
     Dosage: UNK
     Route: 042
  2. HYQVIA [Suspect]
     Active Substance: HUMAN IMMUNOGLOBULIN G\HYALURONIDASE RECOMBINANT HUMAN
     Indication: Primary immunodeficiency syndrome
     Dosage: 5 GRAM, MONTHLY
     Route: 042
     Dates: start: 20220610
  3. HYQVIA [Suspect]
     Active Substance: HUMAN IMMUNOGLOBULIN G\HYALURONIDASE RECOMBINANT HUMAN
     Dosage: 5 GRAM, MONTHLY
     Route: 058
     Dates: start: 20220610
  4. HYQVIA [Suspect]
     Active Substance: HUMAN IMMUNOGLOBULIN G\HYALURONIDASE RECOMBINANT HUMAN
     Dosage: 10 GRAM, MONTHLY
     Route: 058
     Dates: start: 20220610

REACTIONS (8)
  - Postoperative wound infection [Recovering/Resolving]
  - Post procedural erythema [Recovering/Resolving]
  - Poor venous access [Unknown]
  - Bacterial test positive [Recovering/Resolving]
  - Infusion site pain [Unknown]
  - Infusion site swelling [Unknown]
  - Product prescribing error [Unknown]
  - Product dispensing error [Unknown]

NARRATIVE: CASE EVENT DATE: 20220626
